FAERS Safety Report 18410538 (Version 1)
Quarter: 2020Q4

REPORT INFORMATION
  Report Type: Spontaneous
  Country: TW (occurrence: TW)
  Receive Date: 20201021
  Receipt Date: 20201021
  Transmission Date: 20210114
  Serious: Yes (Death)
  Sender: FDA-Public Use
  Company Number: TW-PFIZER INC-2020405660

PATIENT
  Age: 26 Year
  Sex: Female

DRUGS (11)
  1. CRIZOTINIB [Suspect]
     Active Substance: CRIZOTINIB
     Dosage: UNK, CYCLIC (9CYCLES)
     Dates: start: 20190821, end: 202001
  2. BEVACIZUMAB. [Suspect]
     Active Substance: BEVACIZUMAB
     Dosage: UNK UNK, CYCLIC (9CYCLES)
     Dates: start: 20190821, end: 202001
  3. CRIZOTINIB [Suspect]
     Active Substance: CRIZOTINIB
     Dosage: UNK
     Dates: start: 20200113, end: 202003
  4. CISPLATIN. [Suspect]
     Active Substance: CISPLATIN
     Dosage: UNK
     Dates: start: 20200113, end: 202003
  5. BEVACIZUMAB. [Suspect]
     Active Substance: BEVACIZUMAB
     Dosage: UNK UNK, CYCLIC (2 CYCLES)
     Dates: start: 201906, end: 201907
  6. BEVACIZUMAB. [Suspect]
     Active Substance: BEVACIZUMAB
     Dosage: UNK
     Dates: start: 20200113, end: 202003
  7. PEMETREXED. [Suspect]
     Active Substance: PEMETREXED
     Dosage: UNK, CYCLIC (2 CYCLES)
     Dates: start: 201906, end: 201907
  8. GEFITINIB. [Suspect]
     Active Substance: GEFITINIB
     Dosage: UNK, CYCLIC (2 CYCLES)
     Dates: start: 201906, end: 201907
  9. TAXOTERE [Suspect]
     Active Substance: DOCETAXEL
     Dosage: UNK
     Dates: start: 20200322, end: 202004
  10. CISPLATIN. [Suspect]
     Active Substance: CISPLATIN
     Dosage: UNK, CYCLIC (2 CYCLES)
     Dates: start: 201906, end: 201907
  11. PEMETREXED. [Suspect]
     Active Substance: PEMETREXED
     Dosage: UNK
     Dates: start: 20200113, end: 202003

REACTIONS (1)
  - Death [Fatal]

NARRATIVE: CASE EVENT DATE: 20200405
